FAERS Safety Report 26213501 (Version 1)
Quarter: 2025Q4

REPORT INFORMATION
  Report Type: Spontaneous
  Country: CH (occurrence: CH)
  Receive Date: 20251230
  Receipt Date: 20251230
  Transmission Date: 20260118
  Serious: Yes (Hospitalization, Other)
  Sender: MYLAN
  Company Number: None

PATIENT
  Age: 76 Year
  Sex: Female
  Weight: 87 kg

DRUGS (40)
  1. ATORVASTATIN [Interacting]
     Active Substance: ATORVASTATIN
     Indication: Product used for unknown indication
     Dosage: 40 MILLIGRAM, PM (0-0-0-1)
     Route: 061
  2. ATORVASTATIN [Interacting]
     Active Substance: ATORVASTATIN
     Dosage: 40 MILLIGRAM, PM (0-0-0-1)
     Route: 048
  3. ATORVASTATIN [Interacting]
     Active Substance: ATORVASTATIN
     Dosage: 40 MILLIGRAM, PM (0-0-0-1)
     Route: 048
  4. ATORVASTATIN [Interacting]
     Active Substance: ATORVASTATIN
     Dosage: 40 MILLIGRAM, PM (0-0-0-1)
     Route: 061
  5. TORSEMIDE [Interacting]
     Active Substance: TORSEMIDE
     Indication: Product used for unknown indication
     Dosage: 50 MILLIGRAM, AM (1-0-0-0)
     Route: 061
  6. TORSEMIDE [Interacting]
     Active Substance: TORSEMIDE
     Dosage: 50 MILLIGRAM, AM (1-0-0-0)
     Route: 048
  7. TORSEMIDE [Interacting]
     Active Substance: TORSEMIDE
     Dosage: 50 MILLIGRAM, AM (1-0-0-0)
     Route: 048
  8. TORSEMIDE [Interacting]
     Active Substance: TORSEMIDE
     Dosage: 50 MILLIGRAM, AM (1-0-0-0)
     Route: 061
  9. EMPAGLIFLOZIN\METFORMIN HYDROCHLORIDE [Interacting]
     Active Substance: EMPAGLIFLOZIN\METFORMIN HYDROCHLORIDE
     Indication: Product used for unknown indication
     Dosage: 1 DOSAGE FORM, BID (2X/DAY)
     Route: 061
  10. EMPAGLIFLOZIN\METFORMIN HYDROCHLORIDE [Interacting]
     Active Substance: EMPAGLIFLOZIN\METFORMIN HYDROCHLORIDE
     Dosage: 1 DOSAGE FORM, BID (2X/DAY)
     Route: 048
  11. EMPAGLIFLOZIN\METFORMIN HYDROCHLORIDE [Interacting]
     Active Substance: EMPAGLIFLOZIN\METFORMIN HYDROCHLORIDE
     Dosage: 1 DOSAGE FORM, BID (2X/DAY)
     Route: 048
  12. EMPAGLIFLOZIN\METFORMIN HYDROCHLORIDE [Interacting]
     Active Substance: EMPAGLIFLOZIN\METFORMIN HYDROCHLORIDE
     Dosage: 1 DOSAGE FORM, BID (2X/DAY)
     Route: 061
  13. ASPIRIN [Interacting]
     Active Substance: ASPIRIN
     Indication: Product used for unknown indication
     Dosage: 100 MILLIGRAM, AM (1-0-0-0)
     Route: 061
  14. ASPIRIN [Interacting]
     Active Substance: ASPIRIN
     Dosage: 100 MILLIGRAM, AM (1-0-0-0)
     Route: 048
  15. ASPIRIN [Interacting]
     Active Substance: ASPIRIN
     Dosage: 100 MILLIGRAM, AM (1-0-0-0)
     Route: 048
  16. ASPIRIN [Interacting]
     Active Substance: ASPIRIN
     Dosage: 100 MILLIGRAM, AM (1-0-0-0)
     Route: 061
  17. NOVORAPID [Interacting]
     Active Substance: INSULIN ASPART
     Indication: Product used for unknown indication
     Dosage: UNK, PRN (10-20 IU S.C. 3X/DAY)
  18. NOVORAPID [Interacting]
     Active Substance: INSULIN ASPART
     Dosage: UNK, PRN (10-20 IU S.C. 3X/DAY)
     Route: 058
  19. NOVORAPID [Interacting]
     Active Substance: INSULIN ASPART
     Dosage: UNK, PRN (10-20 IU S.C. 3X/DAY)
     Route: 058
  20. NOVORAPID [Interacting]
     Active Substance: INSULIN ASPART
     Dosage: UNK, PRN (10-20 IU S.C. 3X/DAY)
  21. PERINDOPRIL [Interacting]
     Active Substance: PERINDOPRIL
     Indication: Product used for unknown indication
     Dosage: 5 MILLIGRAM, BID (2X/DAY)
     Route: 061
  22. PERINDOPRIL [Interacting]
     Active Substance: PERINDOPRIL
     Dosage: 5 MILLIGRAM, BID (2X/DAY)
     Route: 048
  23. PERINDOPRIL [Interacting]
     Active Substance: PERINDOPRIL
     Dosage: 5 MILLIGRAM, BID (2X/DAY)
     Route: 048
  24. PERINDOPRIL [Interacting]
     Active Substance: PERINDOPRIL
     Dosage: 5 MILLIGRAM, BID (2X/DAY)
     Route: 061
  25. METOPROLOL SUCCINATE [Interacting]
     Active Substance: METOPROLOL SUCCINATE
     Indication: Product used for unknown indication
     Dosage: 50 MILLIGRAM, BID (2X/DAY)
     Route: 061
  26. METOPROLOL SUCCINATE [Interacting]
     Active Substance: METOPROLOL SUCCINATE
     Dosage: 50 MILLIGRAM, BID (2X/DAY)
     Route: 048
  27. METOPROLOL SUCCINATE [Interacting]
     Active Substance: METOPROLOL SUCCINATE
     Dosage: 50 MILLIGRAM, BID (2X/DAY)
     Route: 048
  28. METOPROLOL SUCCINATE [Interacting]
     Active Substance: METOPROLOL SUCCINATE
     Dosage: 50 MILLIGRAM, BID (2X/DAY)
     Route: 061
  29. OZEMPIC [Interacting]
     Active Substance: SEMAGLUTIDE
     Indication: Product used for unknown indication
     Dosage: 0.75 MILLIGRAM, QW (1X/WEEK)
  30. OZEMPIC [Interacting]
     Active Substance: SEMAGLUTIDE
     Dosage: 0.75 MILLIGRAM, QW (1X/WEEK)
     Route: 058
  31. OZEMPIC [Interacting]
     Active Substance: SEMAGLUTIDE
     Dosage: 0.75 MILLIGRAM, QW (1X/WEEK)
     Route: 058
  32. OZEMPIC [Interacting]
     Active Substance: SEMAGLUTIDE
     Dosage: 0.75 MILLIGRAM, QW (1X/WEEK)
  33. TRESIBA [Interacting]
     Active Substance: INSULIN DEGLUDEC
     Indication: Product used for unknown indication
     Dosage: 30 INTERNATIONAL UNIT, Q8H
  34. TRESIBA [Interacting]
     Active Substance: INSULIN DEGLUDEC
     Dosage: 30 INTERNATIONAL UNIT, Q8H
     Route: 058
  35. TRESIBA [Interacting]
     Active Substance: INSULIN DEGLUDEC
     Dosage: 30 INTERNATIONAL UNIT, Q8H
     Route: 058
  36. TRESIBA [Interacting]
     Active Substance: INSULIN DEGLUDEC
     Dosage: 30 INTERNATIONAL UNIT, Q8H
  37. PROLIA [Concomitant]
     Active Substance: DENOSUMAB
     Indication: Product used for unknown indication
     Dosage: 60 MILLIGRAM PER MILLILITRE (EVERY 6 MONTHS)
  38. PROLIA [Concomitant]
     Active Substance: DENOSUMAB
     Dosage: 60 MILLIGRAM PER MILLILITRE (EVERY 6 MONTHS)
     Route: 058
  39. PROLIA [Concomitant]
     Active Substance: DENOSUMAB
     Dosage: 60 MILLIGRAM PER MILLILITRE (EVERY 6 MONTHS)
     Route: 058
  40. PROLIA [Concomitant]
     Active Substance: DENOSUMAB
     Dosage: 60 MILLIGRAM PER MILLILITRE (EVERY 6 MONTHS)

REACTIONS (2)
  - Hypoglycaemia [Recovered/Resolved]
  - Lactic acidosis [Recovered/Resolved]

NARRATIVE: CASE EVENT DATE: 20250318
